FAERS Safety Report 23057754 (Version 4)
Quarter: 2024Q1

REPORT INFORMATION
  Report Type: Spontaneous
  Country: FR (occurrence: FR)
  Receive Date: 20231012
  Receipt Date: 20240313
  Transmission Date: 20240409
  Serious: Yes (Death, Life-Threatening, Hospitalization, Other)
  Sender: FDA-Public Use
  Company Number: FR-AFSSAPS-MP2023001748

PATIENT
  Age: 67 Year
  Sex: Female
  Weight: 54 kg

DRUGS (8)
  1. AMOXICILLIN [Suspect]
     Active Substance: AMOXICILLIN
     Indication: Respiratory tract infection
     Dosage: UNK
     Route: 065
  2. PRAVASTATIN [Suspect]
     Active Substance: PRAVASTATIN
     Indication: Hypercholesterolaemia
     Dosage: ONCE A DAY
     Route: 048
     Dates: start: 20230901, end: 20230917
  3. KRAZATI [Suspect]
     Active Substance: ADAGRASIB
     Indication: Lung adenocarcinoma stage IV
     Dosage: 600 MILLIGRAM, TWO TIMES A DAY
     Route: 048
     Dates: start: 20230901, end: 20230916
  4. KRAZATI [Suspect]
     Active Substance: ADAGRASIB
     Indication: Non-small cell lung cancer metastatic
  5. KEYTRUDA [Suspect]
     Active Substance: PEMBROLIZUMAB
     Indication: Lung adenocarcinoma stage IV
     Dosage: 200 MILLIGRAM, 3 WEEKS
     Route: 042
     Dates: start: 20220803, end: 20230629
  6. PERINDOPRIL [Concomitant]
     Active Substance: PERINDOPRIL
     Indication: Hypertension
     Dosage: UNK, ONCE A DAY
     Route: 048
  7. ATORVASTATIN [Concomitant]
     Active Substance: ATORVASTATIN
     Indication: Hypercholesterolaemia
     Dosage: UNK, ONCE A DAY
     Route: 048
     Dates: end: 20230831
  8. KARDEGIC [Concomitant]
     Active Substance: ASPIRIN DL-LYSINE
     Indication: Peripheral arterial occlusive disease
     Dosage: UNK, ONCE A DAY
     Route: 048

REACTIONS (8)
  - Toxic epidermal necrolysis [Fatal]
  - Multiple organ dysfunction syndrome [Fatal]
  - Mixed liver injury [Recovering/Resolving]
  - Hepatic cytolysis [Not Recovered/Not Resolved]
  - Vomiting [Unknown]
  - Weight decreased [Unknown]
  - Nausea [Recovering/Resolving]
  - Diarrhoea [Recovering/Resolving]

NARRATIVE: CASE EVENT DATE: 20230902
